FAERS Safety Report 7330812-6 (Version None)
Quarter: 2011Q1

REPORT INFORMATION
  Report Type: 
  Country: None (occurrence: None)
  Receive Date: 20110304
  Receipt Date: 20110228
  Transmission Date: 20110831
  Serious: No
  Sender: FDA-Public Use
  Company Number: US-PFIZER INC-2011042021

PATIENT
  Sex: Male

DRUGS (2)
  1. GEODON [Suspect]
     Dosage: 40 MG, 1X/DAY
     Route: 048
  2. LAMICTAL [Concomitant]
     Dosage: UNK

REACTIONS (1)
  - PARAESTHESIA [None]
